FAERS Safety Report 7687457-8 (Version None)
Quarter: 2011Q3

REPORT INFORMATION
  Report Type: 
  Country: None (occurrence: None)
  Receive Date: 20110816
  Receipt Date: 20110808
  Transmission Date: 20111222
  Serious: Yes (Other)
  Sender: FDA-Public Use
  Company Number: US-CEPHALON-2008000780

PATIENT
  Age: 30 Year
  Sex: Female

DRUGS (2)
  1. XYREM [Concomitant]
     Route: 048
  2. PROVIGIL [Suspect]
     Indication: NARCOLEPSY
     Dosage: 400-500 MG DAILY
     Route: 048

REACTIONS (3)
  - SWOLLEN TONGUE [None]
  - ORAL PAIN [None]
  - OEDEMA MOUTH [None]
